FAERS Safety Report 9413561 (Version 2)
Quarter: 2013Q3

REPORT INFORMATION
  Report Type: Spontaneous
  Country: GB (occurrence: None)
  Receive Date: 20130703
  Receipt Date: 20130717
  Transmission Date: 20140515
  Serious: Yes (Disabling)
  Sender: FDA-Public Use
  Company Number: 222199

PATIENT
  Age: 50 Year
  Sex: Male

DRUGS (1)
  1. DAIVOBET [Suspect]
     Indication: PSORIASIS
     Dates: start: 2003, end: 2013

REACTIONS (3)
  - Pustular psoriasis [None]
  - Inflammation [None]
  - Rebound psoriasis [None]
